FAERS Safety Report 5155179-3 (Version None)
Quarter: 2006Q4

REPORT INFORMATION
  Report Type: 
  Country: None (occurrence: None)
  Receive Date: 20061121
  Receipt Date: 20060713
  Transmission Date: 20070319
  Serious: Yes (Death, Hospitalization)
  Sender: FDA-Public Use
  Company Number: IT-ELI_LILLY_AND_COMPANY-IT200607002804

PATIENT
  Age: 75 Year
  Sex: Female

DRUGS (3)
  1. FORTEO [Suspect]
     Indication: OSTEOPOROTIC FRACTURE
     Dosage: 20 UG, DAILY (1/D)
     Route: 058
     Dates: start: 20051221, end: 20060330
  2. CALCIUM [Concomitant]
     Dosage: 1000 MG, UNK
     Dates: start: 20060101
  3. VITAMIN D3 [Concomitant]
     Dosage: 800 IU, UNK
     Dates: start: 20060101

REACTIONS (5)
  - ACUTE LEUKAEMIA [None]
  - ALANINE AMINOTRANSFERASE INCREASED [None]
  - BLOOD GLUCOSE INCREASED [None]
  - CEREBRAL HAEMORRHAGE [None]
  - PANCYTOPENIA [None]
